FAERS Safety Report 20972027 (Version 3)
Quarter: 2023Q4

REPORT INFORMATION
  Report Type: Spontaneous
  Country: US (occurrence: US)
  Receive Date: 20220616
  Receipt Date: 20231214
  Transmission Date: 20240110
  Serious: No
  Sender: FDA-Public Use
  Company Number: US-SA-SAC20220613001802

PATIENT
  Sex: Female

DRUGS (1)
  1. DUPIXENT [Suspect]
     Active Substance: DUPILUMAB
     Indication: Dermatitis atopic
     Dosage: 300 MG, QOW
     Route: 058
     Dates: start: 20201223

REACTIONS (6)
  - Alopecia [Unknown]
  - Hypoaesthesia [Recovering/Resolving]
  - Photosensitivity reaction [Unknown]
  - Weight increased [Unknown]
  - Vision blurred [Unknown]
  - Dry eye [Unknown]
